FAERS Safety Report 8221540-3 (Version None)
Quarter: 2012Q1

REPORT INFORMATION
  Report Type: 
  Country: None (occurrence: None)
  Receive Date: 20120315
  Receipt Date: 20120309
  Transmission Date: 20120608
  Serious: Yes (Hospitalization)
  Sender: FDA-Public Use
  Company Number: DSA_48843_2012

PATIENT
  Sex: Female

DRUGS (3)
  1. XENAZINE [Suspect]
     Indication: HUNTINGTON'S DISEASE
     Dosage: (ONE AND 1/2 TABLET TWICE DAILY ORAL), (6.25 MG BID ORAL)
     Route: 048
     Dates: end: 20120201
  2. XENAZINE [Suspect]
     Indication: HUNTINGTON'S DISEASE
     Dosage: (ONE AND 1/2 TABLET TWICE DAILY ORAL), (6.25 MG BID ORAL)
     Route: 048
     Dates: start: 20111208
  3. VALIUM [Concomitant]

REACTIONS (5)
  - UNRESPONSIVE TO STIMULI [None]
  - BLOOD POTASSIUM INCREASED [None]
  - PNEUMONIA ASPIRATION [None]
  - WHITE BLOOD CELL COUNT INCREASED [None]
  - DRUG DOSE OMISSION [None]
